FAERS Safety Report 5835044-6 (Version None)
Quarter: 2008Q3

REPORT INFORMATION
  Report Type: 
  Country: None (occurrence: None)
  Receive Date: 20080806
  Receipt Date: 20080625
  Transmission Date: 20090109
  Serious: Yes (Hospitalization, Other)
  Sender: FDA-Public Use
  Company Number: JP-ROCHE-577893

PATIENT
  Age: 18 Year
  Sex: Male

DRUGS (10)
  1. CELLCEPT [Suspect]
     Route: 065
     Dates: start: 20060501, end: 20060901
  2. CELLCEPT [Suspect]
     Dosage: DOSAGE REDUCED
     Route: 065
     Dates: start: 20060901, end: 20060905
  3. TACROLIMUS [Suspect]
     Dosage: TREATMENT SWITCHED TO CICLOSPORIN
     Route: 065
  4. METHYLPREDNISOLONE [Suspect]
     Route: 065
  5. BASILIXIMAB [Suspect]
     Route: 065
  6. CYCLOSPORINE [Suspect]
     Route: 065
     Dates: end: 20060901
  7. CYCLOSPORINE [Suspect]
     Dosage: DOSAGE REDUCED
     Route: 065
     Dates: start: 20060901
  8. BACTRIM [Suspect]
     Route: 048
     Dates: start: 20060904
  9. BACTRIM [Suspect]
     Dosage: DOSE INCREASE
     Route: 048
  10. LEVOFLOXACIN [Suspect]
     Route: 048
     Dates: start: 20060903

REACTIONS (6)
  - BONE MARROW FAILURE [None]
  - CYTOMEGALOVIRUS ANTIGEN POSITIVE [None]
  - NEPHROPATHY TOXIC [None]
  - PNEUMOCYSTIS JIROVECI PNEUMONIA [None]
  - POLYOMAVIRUS-ASSOCIATED NEPHROPATHY [None]
  - PULMONARY ALVEOLAR HAEMORRHAGE [None]
